FAERS Safety Report 6605112-X (Version None)
Quarter: 2010Q1

REPORT INFORMATION
  Report Type: 
  Country: None (occurrence: None)
  Receive Date: 20100226
  Receipt Date: 20100217
  Transmission Date: 20100710
  Serious: Yes (Death, Life-Threatening, Other)
  Sender: FDA-Public Use
  Company Number: US-ELI_LILLY_AND_COMPANY-US200901005495

PATIENT
  Sex: Male

DRUGS (21)
  1. HUMALOG [Suspect]
     Dosage: 27 U, EACH MORNING
  2. HUMALOG [Suspect]
     Dosage: 27 U, OTHER
  3. HUMALOG [Suspect]
     Dosage: 17 U, EACH EVENING
  4. HUMULIN N [Suspect]
     Dosage: 19 U, EACH MORNING
  5. HUMULIN N [Suspect]
     Dosage: 19 U, OTHER
  6. HUMULIN N [Suspect]
     Dosage: 21 U, EACH EVENING
  7. ALLOPURINOL [Concomitant]
     Dosage: 100 MG, UNK
  8. AMITRIPTYLINE HCL [Concomitant]
     Dosage: 75 UNK, UNK
  9. ATENOLOL [Concomitant]
     Dosage: 100 UNK, UNK
  10. DILTIAZEM HCL [Concomitant]
     Dosage: 120 MG, UNK
  11. FUROSEMIDE [Concomitant]
     Dosage: 80 MG, UNK
  12. LIPITOR [Concomitant]
     Dosage: 60 MG, UNK
  13. LOMOTIL [Concomitant]
     Dosage: 2.5 MG, UNK
  14. NEURONTIN [Concomitant]
     Dosage: 400 MG, UNK
  15. PREVACID [Concomitant]
     Dosage: 30 MG, UNK
  16. TRIAMCINOLONE [Concomitant]
     Dosage: 0.5 %, UNK
     Route: 061
  17. ZEMPLAR [Concomitant]
     Dosage: 2 MG, UNK
  18. IMODIUM [Concomitant]
  19. METAMUCIL-2 [Concomitant]
  20. CALTRATE + D [Concomitant]
  21. TUMS [Concomitant]

REACTIONS (5)
  - CARDIAC ARREST [None]
  - CEREBROVASCULAR ACCIDENT [None]
  - RENAL FAILURE ACUTE [None]
  - RENAL FAILURE CHRONIC [None]
  - RESPIRATORY FAILURE [None]
